FAERS Safety Report 4544104-1 (Version None)
Quarter: 2005Q1

REPORT INFORMATION
  Report Type: 
  Country: None (occurrence: None)
  Receive Date: 20050103
  Receipt Date: 20040405
  Transmission Date: 20050727
  Serious: Yes (Hospitalization)
  Sender: FDA-Public Use
  Company Number: GXKR2004DE00541

PATIENT
  Age: 68 Year
  Sex: Male

DRUGS (4)
  1. DEXAMETHASONE [Suspect]
     Indication: BRAIN OEDEMA
  2. PHENYTOIN [Suspect]
     Indication: EPILEPSY
  3. PREDNISONE [Suspect]
     Indication: THERAPEUTIC PROCEDURE
  4. CEFTRIAXONE [Concomitant]

REACTIONS (4)
  - ACUTE RESPIRATORY FAILURE [None]
  - DRUG HYPERSENSITIVITY [None]
  - DRUG INTERACTION [None]
  - HEPATIC ENZYME INCREASED [None]
